FAERS Safety Report 24736204 (Version 1)
Quarter: 2024Q4

REPORT INFORMATION
  Report Type: Spontaneous
  Country: CN (occurrence: CN)
  Receive Date: 20241216
  Receipt Date: 20241216
  Transmission Date: 20250114
  Serious: Yes (Life-Threatening, Hospitalization, Other)
  Sender: PANACEA BIOTEC PHARMA LIMITED
  Company Number: CN-PBT-009982

PATIENT
  Age: 8 Year
  Sex: Female

DRUGS (10)
  1. TACROLIMUS [Suspect]
     Active Substance: TACROLIMUS
     Indication: Neuromyelitis optica spectrum disorder
     Route: 048
     Dates: start: 201810
  2. METHYLPREDNISOLONE [Suspect]
     Active Substance: METHYLPREDNISOLONE
     Indication: Neuromyelitis optica spectrum disorder
     Dosage: 400MGX2D, 300MGX3D, 250MGX1D, 40MGX1D,35MGX1D, 30MGX1D, 25MGX1D
     Route: 065
     Dates: start: 20161225
  3. PREDNISONE [Concomitant]
     Active Substance: PREDNISONE
     Indication: Neuromyelitis optica spectrum disorder
     Dosage: 4 CAPSULES/TIME
     Route: 048
     Dates: start: 20181028
  4. METHYLPREDNISOLONE [Suspect]
     Active Substance: METHYLPREDNISOLONE
     Indication: Neuromyelitis optica spectrum disorder
     Route: 048
     Dates: start: 20190920
  5. METHYLPREDNISOLONE [Suspect]
     Active Substance: METHYLPREDNISOLONE
     Indication: Neuromyelitis optica spectrum disorder
     Route: 048
  6. TACROLIMUS [Suspect]
     Active Substance: TACROLIMUS
     Indication: Neuromyelitis optica spectrum disorder
     Dosage: 1 CAPSULE EARLY, 2 CAPSULES LATE
     Route: 048
     Dates: start: 20181028
  7. TACROLIMUS [Suspect]
     Active Substance: TACROLIMUS
     Indication: Neuromyelitis optica spectrum disorder
     Dosage: 1MG/TIME
     Route: 048
     Dates: start: 20190920
  8. TACROLIMUS [Suspect]
     Active Substance: TACROLIMUS
     Indication: Neuromyelitis optica spectrum disorder
     Dosage: 1 MG IN MORNING AND 0.5 MG IN EVENING
     Route: 048
     Dates: start: 201810
  9. PREDNISONE [Concomitant]
     Active Substance: PREDNISONE
     Indication: Neuromyelitis optica spectrum disorder
     Dosage: GRADUALLY REDUCE DOSE ACCORDING TO CONDITION
     Route: 048
  10. METHYLPREDNISOLONE [Suspect]
     Active Substance: METHYLPREDNISOLONE
     Indication: Neuromyelitis optica spectrum disorder
     Dosage: 500MGX3D, 300MG/D, 100MG/D, 40MG/DX10,35MGXD
     Route: 065
     Dates: start: 201810

REACTIONS (4)
  - Product use in unapproved indication [Unknown]
  - Respiratory distress [Recovered/Resolved]
  - Pneumonia bacterial [Recovered/Resolved]
  - Pneumocystis jirovecii infection [Recovered/Resolved]

NARRATIVE: CASE EVENT DATE: 20181001
